FAERS Safety Report 10073708 (Version 6)
Quarter: 2015Q1

REPORT INFORMATION
  Report Type: Spontaneous
  Country: US (occurrence: US)
  Receive Date: 20140411
  Receipt Date: 20150227
  Transmission Date: 20150720
  Serious: Yes (Hospitalization, Other)
  Sender: FDA-Public Use
  Company Number: US-009507513-1404USA003605

PATIENT
  Sex: Male

DRUGS (1)
  1. PROPECIA [Suspect]
     Active Substance: FINASTERIDE
     Indication: ALOPECIA
     Dosage: 1 MG, UNK
     Route: 048
     Dates: start: 199812, end: 201312

REACTIONS (21)
  - Diarrhoea [Recovering/Resolving]
  - Erectile dysfunction [Not Recovered/Not Resolved]
  - Disturbance in sexual arousal [Unknown]
  - Pollakiuria [Unknown]
  - Anorgasmia [Unknown]
  - Sexual dysfunction [Not Recovered/Not Resolved]
  - Haematuria [Unknown]
  - Basal cell carcinoma [Unknown]
  - Upper respiratory tract infection [Unknown]
  - Insomnia [Unknown]
  - Genital atrophy [Unknown]
  - Loss of libido [Unknown]
  - Micturition disorder [Unknown]
  - Fatigue [Unknown]
  - Benign prostatic hyperplasia [Unknown]
  - Suprapubic pain [Unknown]
  - Semen volume decreased [Unknown]
  - Leukopenia [Unknown]
  - Vomiting [Recovering/Resolving]
  - Stress [Unknown]
  - Visual impairment [Unknown]

NARRATIVE: CASE EVENT DATE: 2005
